FAERS Safety Report 24308327 (Version 1)
Quarter: 2024Q3

REPORT INFORMATION
  Report Type: Spontaneous
  Country: US (occurrence: US)
  Receive Date: 20240911
  Receipt Date: 20240911
  Transmission Date: 20241016
  Serious: Yes (Other)
  Sender: BAYER
  Company Number: US-BAYER-2024A129181

PATIENT
  Age: 59 Year
  Sex: Male

DRUGS (14)
  1. RIOCIGUAT [Suspect]
     Active Substance: RIOCIGUAT
     Indication: Pulmonary hypertension
     Dosage: 2.5 MG, TID
     Route: 048
     Dates: start: 20230519
  2. OPSUMIT [Concomitant]
     Active Substance: MACITENTAN
  3. TOPIRAMATE [Concomitant]
     Active Substance: TOPIRAMATE
  4. WARFARIN SODIUM [Concomitant]
     Active Substance: WARFARIN SODIUM
  5. PANTOPRAZOLE [Concomitant]
     Active Substance: PANTOPRAZOLE
  6. ZENPEP [Concomitant]
     Active Substance: PANCRELIPASE AMYLASE\PANCRELIPASE LIPASE\PANCRELIPASE PROTEASE
  7. JARDIANCE [Concomitant]
     Active Substance: EMPAGLIFLOZIN
  8. COREG [Concomitant]
     Active Substance: CARVEDILOL
  9. SPIRONOLACTONE [Concomitant]
     Active Substance: SPIRONOLACTONE
  10. DIGOXIN [Concomitant]
     Active Substance: DIGOXIN
  11. LOVASTATIN [Concomitant]
     Active Substance: LOVASTATIN
  12. LOPERAMIDE [Concomitant]
     Active Substance: LOPERAMIDE
  13. MYLANTA [Concomitant]
     Active Substance: ALUMINUM HYDROXIDE\DIMETHICONE\MAGNESIUM HYDROXIDE
  14. TETANUS ANTITOXIN [Concomitant]
     Active Substance: TETANUS ANTITOXIN

REACTIONS (2)
  - Skin laceration [None]
  - Animal bite [None]

NARRATIVE: CASE EVENT DATE: 20240814
